FAERS Safety Report 12550854 (Version 2)
Quarter: 2016Q3

REPORT INFORMATION
  Report Type: Spontaneous
  Country: FR (occurrence: FR)
  Receive Date: 20160712
  Receipt Date: 20160715
  Transmission Date: 20161109
  Serious: Yes (Life-Threatening, Hospitalization)
  Sender: FDA-Public Use
  Company Number: FR-TEVA-673400ISR

PATIENT
  Age: 28 Year
  Sex: Female

DRUGS (19)
  1. KETOPROFEN 100 MG [Suspect]
     Active Substance: KETOPROFEN
     Dosage: 1700 MILLIGRAM DAILY; I.E. 17 TABLETS IN ONE INTAKE
     Route: 065
     Dates: start: 201601, end: 201601
  2. BACLOFEN 10 MG [Suspect]
     Active Substance: BACLOFEN
     Dosage: 960 MILLIGRAM DAILY; I.E. 96 TABLETS IN ONE INTAKE
     Route: 048
     Dates: start: 201601, end: 201601
  3. DAFLON 700 MG [Suspect]
     Active Substance: DIOSMIN\HESPERIDIN
     Dosage: 59.5 GRAM DAILY; I.E. 85 TABLETS IN ONE INTAKE
     Route: 048
     Dates: start: 201601, end: 201601
  4. ALPRAZOLAM 0.25 MG [Suspect]
     Active Substance: ALPRAZOLAM
     Dosage: 68 DOSAGE FORMS DAILY; I.E. 17 MG IN ONE INTAKE
     Route: 048
     Dates: start: 201601, end: 201601
  5. OMEPRAZOLE 20 MG [Suspect]
     Active Substance: OMEPRAZOLE
     Dosage: 100 MILLIGRAM DAILY; I.E. 5 TABLETS IN ONE INTAKE
     Route: 048
     Dates: start: 201601, end: 201601
  6. XEROQUEL LP 300 MG [Suspect]
     Active Substance: QUETIAPINE FUMARATE
     Dosage: 44 DOSAGE FORMS DAILY; EXACT FORM: PROLONGED RELEASE TABLET. 13200 MG IN ONE INTAKE
     Route: 048
     Dates: start: 201601, end: 201601
  7. VENLAFAXINE [Suspect]
     Active Substance: VENLAFAXINE HYDROCHLORIDE
     Dosage: 5925 MILLIGRAM DAILY; I.E. 79 TABLETS IN ONE INTAKE
     Route: 048
     Dates: start: 201601, end: 201601
  8. SPASFON [Suspect]
     Active Substance: PHLOROGLUCINOL
     Route: 048
     Dates: start: 201601, end: 201601
  9. NALTREXONE HYDROCHLORIDE 50 MG TABLET [Suspect]
     Active Substance: NALTREXONE HYDROCHLORIDE
     Dosage: 1400 MILLIGRAM DAILY; I.E. 28 TABLETS IN ONE INTAKE
     Route: 048
     Dates: start: 201601, end: 201601
  10. PYOSTACINE 500 MG [Suspect]
     Active Substance: PRISTINAMYCIN
     Dosage: 10 GRAM DAILY; I.E. 20 TABLETS IN ONE INTAKE
     Route: 048
     Dates: start: 201601, end: 201601
  11. ATARAX [Suspect]
     Active Substance: HYDROXYZINE\HYDROXYZINE HYDROCHLORIDE
     Dosage: 21 DOSAGE FORMS DAILY; I.E. 525 MG IN ONE INTAKE
     Route: 048
     Dates: start: 201601, end: 201601
  12. IBUPROFEN 400 MG [Suspect]
     Active Substance: IBUPROFEN
     Dosage: 4800 MILLIGRAM DAILY; I.E. 12 TABLETS IN ONE INTAKE
     Route: 048
     Dates: start: 201601, end: 201601
  13. ACETYLSALICYLIC ACID [Suspect]
     Active Substance: ASPIRIN
     Dosage: 14 DOSAGE FORMS DAILY; 14 DF IN ONE INTAKE
     Route: 048
     Dates: start: 201601, end: 201601
  14. DOLIPRANE [Suspect]
     Active Substance: ACETAMINOPHEN
     Dosage: 8 GRAM DAILY; I.E. 8 TABLETS IN ONE INTAKE
     Route: 048
     Dates: start: 201601, end: 201601
  15. SULFARLEM 25 MG [Suspect]
     Active Substance: ANETHOLTRITHION
     Dosage: 3750 MILLIGRAM DAILY; I.E. 150 TABLETS IN ONE INTAKE
     Route: 048
     Dates: start: 201601, end: 201601
  16. ZOPICLONE 7.5 MG [Suspect]
     Active Substance: ZOPICLONE
     Dosage: 11 DOSAGE FORMS DAILY; I.E. 82.5 MG IN ONE INTAKE
     Route: 048
     Dates: start: 201601, end: 201601
  17. THERALENE 5 MG [Suspect]
     Active Substance: TRIMEPRAZINE
     Dosage: 43 DOSAGE FORMS DAILY; I.E. 215 MG IN ONE INTAKE
     Route: 048
     Dates: start: 201601, end: 201601
  18. ZYRTEC [Suspect]
     Active Substance: CETIRIZINE HYDROCHLORIDE
     Dosage: 150 MILLIGRAM DAILY; I.E. 15 TABLETS IN ONE INTAKE
     Route: 048
     Dates: start: 201601, end: 201601
  19. VERATRAN 10 MG [Suspect]
     Active Substance: CLOTIAZEPAM
     Dosage: 9 DOSAGE FORMS DAILY; I.E. 90 MG IN ONE INTAKE
     Route: 048
     Dates: start: 201601, end: 201601

REACTIONS (7)
  - Coma [Recovered/Resolved]
  - Status epilepticus [Recovered/Resolved]
  - Poisoning deliberate [Recovered/Resolved]
  - Hypotension [None]
  - Mydriasis [None]
  - Electrocardiogram QT prolonged [Recovered/Resolved]
  - Hepatocellular injury [Recovered/Resolved]

NARRATIVE: CASE EVENT DATE: 201601
